FAERS Safety Report 19983404 (Version 1)
Quarter: 2021Q4

REPORT INFORMATION
  Report Type: Spontaneous
  Country: CN (occurrence: CN)
  Receive Date: 20211021
  Receipt Date: 20211021
  Transmission Date: 20220303
  Serious: Yes (Hospitalization, Other)
  Sender: FDA-Public Use
  Company Number: CN-SA-SAC20211019001083

PATIENT
  Age: 33 Year
  Sex: Female
  Weight: 75.1 kg

DRUGS (5)
  1. ENOXAPARIN SODIUM [Suspect]
     Active Substance: ENOXAPARIN SODIUM
     Indication: Prophylaxis
     Dosage: 6000 IU, QD
     Route: 058
     Dates: start: 20211006, end: 20211013
  2. RITODRINE HYDROCHLORIDE [Suspect]
     Active Substance: RITODRINE HYDROCHLORIDE
     Indication: Prophylaxis
     Dosage: 50 MG, QD
     Route: 041
     Dates: start: 20211006, end: 20211013
  3. SODIUM CHLORIDE [Concomitant]
     Active Substance: SODIUM CHLORIDE
     Indication: Vehicle solution use
     Dosage: 250 ML, QD
     Route: 041
     Dates: start: 20211006, end: 20211013
  4. INOSINE [Concomitant]
     Active Substance: INOSINE
     Indication: Hepatic enzyme increased
     Dosage: UNK
     Route: 048
  5. VITAMIN C [Concomitant]
     Active Substance: ASCORBIC ACID
     Indication: Hepatic enzyme increased
     Route: 048

REACTIONS (4)
  - Twin pregnancy [Unknown]
  - Second trimester pregnancy [Unknown]
  - Product use in unapproved indication [Unknown]
  - Maternal exposure during pregnancy [Unknown]

NARRATIVE: CASE EVENT DATE: 20211013
